FAERS Safety Report 5676923-2 (Version None)
Quarter: 2008Q1

REPORT INFORMATION
  Report Type: 
  Country: None (occurrence: None)
  Receive Date: 20080324
  Receipt Date: 20080314
  Transmission Date: 20080703
  Serious: Yes (Life-Threatening, Hospitalization)
  Sender: FDA-Public Use
  Company Number: FR-BRISTOL-MYERS SQUIBB COMPANY-14121768

PATIENT
  Age: 78 Year
  Sex: Female

DRUGS (10)
  1. GLUCOPHAGE [Suspect]
     Route: 048
     Dates: end: 20080218
  2. PREVISCAN [Suspect]
     Dosage: FORMULATION: PREVISCAN 20 MG TABLET
     Route: 048
     Dates: start: 19960630, end: 20080218
  3. AMARYL [Concomitant]
     Route: 048
  4. DIAMICRON [Concomitant]
     Route: 048
  5. INSULATARD HUMAN INJECTION [Concomitant]
     Route: 058
  6. AMLOR [Concomitant]
     Dosage: FORMULATION: CAPSULES
     Route: 048
  7. FOZITEC TABS [Concomitant]
     Route: 048
  8. BRONCHODUAL [Concomitant]
     Route: 055
  9. LASILIX [Concomitant]
     Dosage: FORMULATION: TABLET
     Route: 048
  10. INIPOMP [Concomitant]

REACTIONS (2)
  - ANAEMIA [None]
  - GASTRIC ULCER HAEMORRHAGE [None]
